FAERS Safety Report 24337919 (Version 1)
Quarter: 2024Q3

REPORT INFORMATION
  Report Type: Spontaneous
  Country: DE (occurrence: DE)
  Receive Date: 20240919
  Receipt Date: 20240919
  Transmission Date: 20241016
  Serious: Yes (Hospitalization, Other)
  Sender: MERCK
  Company Number: DE-009507513-2409DEU005815

PATIENT
  Sex: Female

DRUGS (1)
  1. PEMBROLIZUMAB [Suspect]
     Active Substance: PEMBROLIZUMAB
     Indication: Triple negative breast cancer
     Dosage: UNK UNK, Q3W
     Dates: start: 2022, end: 202312

REACTIONS (6)
  - Breast conserving surgery [Unknown]
  - Radiotherapy [Unknown]
  - Pneumonia [Unknown]
  - Pneumonia [Unknown]
  - Cough [Unknown]
  - COVID-19 [Unknown]

NARRATIVE: CASE EVENT DATE: 20230101
